FAERS Safety Report 4413360-2 (Version None)
Quarter: 2004Q3

REPORT INFORMATION
  Report Type: 
  Country: None (occurrence: None)
  Receive Date: 20040729
  Receipt Date: 20040716
  Transmission Date: 20050211
  Serious: Yes (Hospitalization, Other)
  Sender: FDA-Public Use
  Company Number: HQWYE500617JUN04

PATIENT
  Age: 3 Year
  Sex: Female
  Weight: 12.2 kg

DRUGS (12)
  1. RAPAMUNE [Suspect]
     Indication: PROPHYLAXIS AGAINST TRANSPLANT REJECTION
     Dosage: 1.5 MG 1X PER 1 DAY, ORAL
     Route: 048
     Dates: start: 20031206, end: 20040420
  2. RAPAMUNE [Suspect]
     Indication: PROPHYLAXIS AGAINST TRANSPLANT REJECTION
     Dosage: 1.5 MG 1X PER 1 DAY, ORAL
     Route: 048
     Dates: start: 20040526
  3. MAGNESIUM (MAGNESIUM) [Concomitant]
  4. NEORAL [Concomitant]
  5. NEORAL [Concomitant]
  6. NORVASC [Concomitant]
  7. NORVASC [Concomitant]
  8. BACTRIM [Concomitant]
  9. PREDNISOLONE SODIUM PHOSPHATE (PREDNISOLONE SODIUM PHOSPHATE) [Concomitant]
  10. PREVACID [Concomitant]
  11. ROCEPHIN [Concomitant]
  12. PREDNISONE [Concomitant]

REACTIONS (9)
  - ABDOMINAL ADHESIONS [None]
  - DEHYDRATION [None]
  - DIARRHOEA [None]
  - ILEUS [None]
  - IMMUNOSUPPRESSANT DRUG LEVEL DECREASED [None]
  - IMMUNOSUPPRESSANT DRUG LEVEL INCREASED [None]
  - INTESTINAL DILATATION [None]
  - RENAL FAILURE ACUTE [None]
  - SMALL INTESTINAL OBSTRUCTION [None]
